FAERS Safety Report 9704389 (Version 1)
Quarter: 2013Q4

REPORT INFORMATION
  Report Type: Spontaneous
  Country: US (occurrence: US)
  Receive Date: 20131122
  Receipt Date: 20131122
  Transmission Date: 20140711
  Serious: No
  Sender: FDA-Public Use
  Company Number: US-MYLANLABS-2012S1022560

PATIENT
  Age: 33 Year
  Sex: Female

DRUGS (2)
  1. CLONAZEPAM TABLETS, USP [Suspect]
     Indication: PANIC ATTACK
     Dosage: 0.25 PRN AS WELL
     Route: 048
     Dates: start: 2011
  2. CLONAZEPAM TABLETS, USP [Suspect]
     Indication: PANIC ATTACK
     Route: 048
     Dates: start: 2011

REACTIONS (3)
  - Drug withdrawal syndrome [Not Recovered/Not Resolved]
  - Feeling abnormal [Not Recovered/Not Resolved]
  - Reaction to drug excipients [Not Recovered/Not Resolved]
